FAERS Safety Report 22289137 (Version 1)
Quarter: 2023Q2

REPORT INFORMATION
  Report Type: Report from Study
  Country: IT (occurrence: IT)
  Receive Date: 20230505
  Receipt Date: 20230505
  Transmission Date: 20230722
  Serious: Yes (Other)
  Sender: FDA-Public Use
  Company Number: None

PATIENT
  Age: 78 Year
  Sex: Male

DRUGS (9)
  1. CARDURA [Suspect]
     Active Substance: DOXAZOSIN MESYLATE
     Indication: Hypertension
     Dosage: 4 MILLIGRAM
     Route: 065
  2. ISOPTIN [Suspect]
     Active Substance: VERAPAMIL HYDROCHLORIDE
     Indication: Product used for unknown indication
     Dosage: 120 MILLIGRAM
     Route: 065
  3. LIORESAL [Concomitant]
     Active Substance: BACLOFEN
     Dosage: 25 MILLIGRAM
     Route: 065
  4. FINASTERIDE [Concomitant]
     Active Substance: FINASTERIDE
     Dosage: UNK
     Route: 065
  5. PRADAXA [Concomitant]
     Active Substance: DABIGATRAN ETEXILATE MESYLATE
     Dosage: 150 MILLIGRAM
     Route: 065
  6. LYRICA [Concomitant]
     Active Substance: PREGABALIN
     Dosage: 150 MILLIGRAM
     Route: 065
  7. ATORVASTATIN [Concomitant]
     Active Substance: ATORVASTATIN
     Dosage: 40 MILLIGRAM
     Route: 065
  8. LASIX [Concomitant]
     Active Substance: FUROSEMIDE
     Dosage: 250 MILLIGRAM
     Route: 065
  9. ENALAPRIL [Concomitant]
     Active Substance: ENALAPRIL
     Dosage: 20 MILLIGRAM
     Route: 065

REACTIONS (2)
  - Syncope [Recovered/Resolved]
  - Orthostatic hypotension [Recovering/Resolving]

NARRATIVE: CASE EVENT DATE: 20221023
